FAERS Safety Report 25800226 (Version 1)
Quarter: 2025Q3

REPORT INFORMATION
  Report Type: Spontaneous
  Country: CN (occurrence: CN)
  Receive Date: 20250915
  Receipt Date: 20250915
  Transmission Date: 20251021
  Serious: Yes (Hospitalization, Other)
  Sender: WOCKHARDT BIO AG
  Company Number: CN-WOCKHARDT BIO AG-2025WBA000079

PATIENT
  Age: 82 Year
  Sex: Female

DRUGS (1)
  1. CEFTRIAXONE [Suspect]
     Active Substance: CEFTRIAXONE
     Indication: Erysipelas
     Route: 042

REACTIONS (4)
  - Cerebral infarction [Recovered/Resolved]
  - Peripheral vein thrombosis [Recovered/Resolved]
  - Autoimmune haemolytic anaemia [Recovered/Resolved]
  - Product use in unapproved indication [Unknown]
